FAERS Safety Report 7751305-8 (Version None)
Quarter: 2011Q3

REPORT INFORMATION
  Report Type: 
  Country: None (occurrence: None)
  Receive Date: 20110914
  Receipt Date: 20110906
  Transmission Date: 20111222
  Serious: Yes (Other)
  Sender: FDA-Public Use
  Company Number: US-TYCO HEALTHCARE/MALLINCKRODT-T201101751

PATIENT
  Age: 70 Year
  Sex: Female

DRUGS (3)
  1. BLOOD PRESSURE MEDICATION [Concomitant]
  2. PENNSAID [Suspect]
     Indication: OSTEOARTHRITIS
     Dosage: 14 DROPS TO LEFT KNEE TWO TO THREE TIMES A DAY
  3. PENNSAID [Suspect]
     Dosage: 2 DROPS TO SHOULDER AND NECK
     Route: 061

REACTIONS (3)
  - HEART RATE DECREASED [None]
  - DRUG INEFFECTIVE [None]
  - DRUG ADMINISTERED AT INAPPROPRIATE SITE [None]
